FAERS Safety Report 9645811 (Version 1)
Quarter: 2013Q4

REPORT INFORMATION
  Report Type: Spontaneous
  Country: US (occurrence: None)
  Receive Date: 20131023
  Receipt Date: 20131023
  Transmission Date: 20140711
  Serious: Yes (Hospitalization)
  Sender: FDA-Public Use
  Company Number: UTC-039135

PATIENT
  Age: 65 Year
  Sex: Female

DRUGS (2)
  1. REMODULIN [Suspect]
     Indication: PULMONARY ARTERIAL HYPERTENSION
     Dosage: 156.96 UG/KG (0.109 UG/KG, 1 IN 1 MIN)
     Route: 058
     Dates: start: 20120118
  2. ADCIRCA (TADALAFIL) [Concomitant]

REACTIONS (2)
  - Fluid overload [None]
  - Infusion site infection [None]
